FAERS Safety Report 5261852-9 (Version None)
Quarter: 2007Q1

REPORT INFORMATION
  Report Type: 
  Country: None (occurrence: None)
  Receive Date: 20070310
  Receipt Date: 20070226
  Transmission Date: 20070707
  Serious: Yes (Other)
  Sender: FDA-Public Use
  Company Number: PHBS2007BR02295

PATIENT
  Age: 65 Year
  Sex: Female
  Weight: 95 kg

DRUGS (4)
  1. LUDIOMIL [Suspect]
     Indication: DEPRESSION
     Dosage: 75 MG, QD
     Route: 048
     Dates: start: 20070203
  2. CARBOLITHIUM [Concomitant]
     Indication: DEPRESSION
     Dosage: 900 MG/DAY
     Route: 048
  3. RIVOTRIL [Concomitant]
     Indication: DEPRESSION
     Dosage: 10 DRP, BID
     Route: 048
  4. EFFEXOR [Concomitant]
     Indication: DEPRESSION
     Dosage: 1 TAB/DAY
     Route: 048

REACTIONS (12)
  - AGITATION [None]
  - ANXIETY [None]
  - DIZZINESS [None]
  - DYSPNOEA [None]
  - FEAR [None]
  - FEELING ABNORMAL [None]
  - MALAISE [None]
  - PANIC ATTACK [None]
  - RETCHING [None]
  - SENSATION OF PRESSURE [None]
  - VERTIGO [None]
  - VOMITING [None]
